FAERS Safety Report 8819713 (Version 1)
Quarter: 2012Q4

REPORT INFORMATION
  Report Type: 
  Country: US (occurrence: US)
  Receive Date: 20121001
  Receipt Date: 20121001
  Transmission Date: 20130627
  Serious: Yes (Other)
  Sender: FDA-Public Use
  Company Number: US-ROCHE-1104097

PATIENT
  Sex: Female

DRUGS (9)
  1. HERCEPTIN [Suspect]
     Indication: BREAST CANCER FEMALE
     Route: 065
     Dates: start: 20060525
  2. HERCEPTIN [Suspect]
     Route: 065
     Dates: start: 20060612
  3. HERCEPTIN [Suspect]
     Route: 065
     Dates: start: 20060626
  4. HERCEPTIN [Suspect]
     Route: 065
     Dates: start: 20060706
  5. HERCEPTIN [Suspect]
     Route: 065
     Dates: start: 20060720
  6. HERCEPTIN [Suspect]
     Route: 065
     Dates: start: 20060803
  7. ADRIAMYCIN [Concomitant]
  8. AVASTIN [Concomitant]
     Route: 065
  9. TAXOL [Concomitant]

REACTIONS (2)
  - Disease progression [Unknown]
  - Left ventricular dysfunction [Unknown]
